FAERS Safety Report 9387658 (Version 1)
Quarter: 2013Q3

REPORT INFORMATION
  Report Type: Spontaneous
  Country: JP (occurrence: JP)
  Receive Date: 20130708
  Receipt Date: 20130708
  Transmission Date: 20140515
  Serious: Yes (Other)
  Sender: FDA-Public Use
  Company Number: JP-ASTELLAS-2013JP007271

PATIENT
  Sex: Female

DRUGS (3)
  1. VESICARE [Suspect]
     Dosage: 2.5 MG, UID/QD
     Route: 048
  2. VESICARE [Suspect]
     Dosage: 5 MG, TID
     Route: 048
  3. RYTHMODAN /00271801/ [Suspect]
     Route: 048

REACTIONS (4)
  - Accidental overdose [Unknown]
  - Electrocardiogram QT prolonged [Unknown]
  - Ventricular tachycardia [Unknown]
  - Loss of consciousness [Unknown]
